FAERS Safety Report 8261208-0 (Version None)
Quarter: 2012Q2

REPORT INFORMATION
  Report Type: 
  Country: None (occurrence: None)
  Receive Date: 20120405
  Receipt Date: 20120330
  Transmission Date: 20120825
  Serious: Yes (Other)
  Sender: FDA-Public Use
  Company Number: US-AMGEN-USASP2012020709

PATIENT
  Age: 76 Year
  Sex: Female
  Weight: 71.655 kg

DRUGS (5)
  1. ATORVASTATIN CALCIUM [Concomitant]
     Dosage: UNK
  2. RALOXIFENE HYDROCHLORIDE [Concomitant]
     Dosage: UNK
  3. ESOMEPRAZOLE SODIUM [Concomitant]
     Dosage: UNK
  4. ENBREL [Suspect]
     Indication: PRODUCT USED FOR UNKNOWN INDICATION
     Dosage: UNK
     Route: 058
     Dates: end: 20110101
  5. HUMIRA [Suspect]
     Indication: PSORIASIS
     Dosage: 40 MG, Q2WK
     Route: 058
     Dates: start: 20111201, end: 20120101

REACTIONS (3)
  - LIP AND/OR ORAL CAVITY CANCER [None]
  - SENSORY DISTURBANCE [None]
  - SKIN CANCER [None]
